FAERS Safety Report 11846463 (Version 1)
Quarter: 2015Q4

REPORT INFORMATION
  Report Type: Spontaneous
  Country: DE (occurrence: DE)
  Receive Date: 20151217
  Receipt Date: 20151217
  Transmission Date: 20160305
  Serious: Yes (Other)
  Sender: FDA-Public Use
  Company Number: DE-PFIZER INC-2015443186

PATIENT
  Age: 82 Year
  Sex: Female

DRUGS (1)
  1. LONITEN [Suspect]
     Active Substance: MINOXIDIL
     Indication: HYPERTENSION
     Dosage: 2.5 MG, 2X/DAY

REACTIONS (12)
  - Erythema [Unknown]
  - Eye swelling [Unknown]
  - Heart rate increased [Unknown]
  - Otorrhoea [Unknown]
  - Bladder discomfort [Unknown]
  - Chest pain [Unknown]
  - Blood urea increased [Unknown]
  - Night sweats [Unknown]
  - Urinary retention [Unknown]
  - Abdominal pain lower [Unknown]
  - Feeling hot [Unknown]
  - Rhinorrhoea [Unknown]
